FAERS Safety Report 7932815-7 (Version None)
Quarter: 2011Q4

REPORT INFORMATION
  Report Type: 
  Country: None (occurrence: None)
  Receive Date: 20111122
  Receipt Date: 20111118
  Transmission Date: 20120403
  Serious: Yes (Other)
  Sender: FDA-Public Use
  Company Number: ES-PFIZER INC-2010124514

PATIENT
  Age: 79 Year
  Sex: Male

DRUGS (10)
  1. FUCUS [Concomitant]
     Dosage: UNK
  2. SUTRIL NEO [Concomitant]
     Dosage: UNK
  3. PLANTABEN [Concomitant]
     Dosage: UNK
  4. AMLODIPINE BESYLATE [Suspect]
     Dosage: 5 MG, 1X/DAY
     Route: 048
     Dates: start: 20090101, end: 20100924
  5. INDOMETHACIN [Concomitant]
     Dosage: UNK
  6. CLOPIDOGREL BISULFATE [Concomitant]
     Dosage: UNK
  7. EPLERENONE [Suspect]
     Dosage: 25 MG, 1X/DAY
     Route: 048
     Dates: start: 20090101, end: 20100924
  8. PREDNISONE [Concomitant]
     Dosage: UNK
  9. DIOSMIN/HESPERIDIN [Concomitant]
     Dosage: UNK
  10. ASPIRIN [Concomitant]
     Dosage: UNK

REACTIONS (2)
  - BLOOD AMYLASE INCREASED [None]
  - MACROAMYLASAEMIA [None]
